FAERS Safety Report 7715583-3 (Version None)
Quarter: 2011Q3

REPORT INFORMATION
  Report Type: 
  Country: None (occurrence: None)
  Receive Date: 20110823
  Receipt Date: 20110812
  Transmission Date: 20111222
  Serious: Yes (Hospitalization, Other)
  Sender: FDA-Public Use
  Company Number: GER/GER/11/0020698

PATIENT
  Sex: Male
  Weight: 3.07 kg

DRUGS (4)
  1. LEVOTHYROXINE SODIUM [Concomitant]
  2. SERTRALINE HYDROCHLORIDE [Suspect]
     Indication: MATERNAL EXPOSURE DURING PREGNANCY
     Dosage: TRANSPLACENTAL
     Route: 064
     Dates: start: 20100208, end: 20101112
  3. THYROXIN/IODID (THYROXINE I 125) [Concomitant]
  4. FOLIO (FOLIC ACID) [Concomitant]

REACTIONS (5)
  - NEONATAL RESPIRATORY ACIDOSIS [None]
  - BRADYCARDIA NEONATAL [None]
  - NEONATAL RESPIRATORY DISTRESS SYNDROME [None]
  - TORTICOLLIS [None]
  - MATERNAL DRUGS AFFECTING FOETUS [None]
